FAERS Safety Report 23584573 (Version 2)
Quarter: 2024Q1

REPORT INFORMATION
  Report Type: Spontaneous
  Country: US (occurrence: US)
  Receive Date: 20240301
  Receipt Date: 20240325
  Transmission Date: 20240410
  Serious: No
  Sender: FDA-Public Use
  Company Number: US-AMGEN-USASP2024038225

PATIENT
  Age: 60 Year
  Sex: Female

DRUGS (3)
  1. PROLIA [Suspect]
     Active Substance: DENOSUMAB
     Indication: Pathological fracture
     Dosage: 60 MILLIGRAM, Q6MO
     Route: 058
     Dates: start: 202307
  2. PROLIA [Suspect]
     Active Substance: DENOSUMAB
     Indication: Osteoporosis postmenopausal
  3. EVENITY [Suspect]
     Active Substance: ROMOSOZUMAB-AQQG
     Indication: Pathological fracture
     Dosage: UNK UNK, QMO
     Route: 058
     Dates: end: 202302

REACTIONS (4)
  - Arthralgia [Recovered/Resolved]
  - Sinusitis [Recovered/Resolved]
  - Osteoarthritis [Recovered/Resolved]
  - Tendonitis [Recovered/Resolved]

NARRATIVE: CASE EVENT DATE: 20230701
